FAERS Safety Report 6379849-4 (Version None)
Quarter: 2009Q3

REPORT INFORMATION
  Report Type: 
  Country: None (occurrence: None)
  Receive Date: 20090928
  Receipt Date: 20090916
  Transmission Date: 20100115
  Serious: Yes (Other)
  Sender: FDA-Public Use
  Company Number: BE-ELI_LILLY_AND_COMPANY-BE200905005153

PATIENT
  Sex: Female
  Weight: 72 kg

DRUGS (5)
  1. CYMBALTA [Suspect]
     Indication: DEPRESSION
     Dosage: 60 MG, DAILY (1/D)
     Route: 065
     Dates: start: 20090414, end: 20090516
  2. OLMETEC [Concomitant]
     Dosage: 1 D/F, DAILY (1/D)
     Route: 048
     Dates: start: 20070501
  3. BISOPROLOL FUMARATE [Concomitant]
     Dosage: 1.5 D/F, DAILY (1/D)
     Dates: start: 20080601
  4. CORUNO [Concomitant]
     Dosage: 1 D/F, DAILY (1/D)
     Dates: start: 20080601
  5. OMEPRAZOLE [Concomitant]
     Dosage: 1 D/F, DAILY (1/D)
     Route: 048
     Dates: start: 20070401

REACTIONS (3)
  - CEREBRAL ATROPHY [None]
  - DEHYDRATION [None]
  - MYOCLONIC EPILEPSY [None]
